FAERS Safety Report 5263723-0 (Version None)
Quarter: 2007Q1

REPORT INFORMATION
  Report Type: 
  Country: None (occurrence: None)
  Receive Date: 20061213
  Receipt Date: 20040614
  Transmission Date: 20070707
  Serious: No
  Sender: FDA-Public Use
  Company Number: 2004UW12354

PATIENT
  Age: 74 Year
  Sex: Male
  Weight: 81.6475 kg

DRUGS (11)
  1. IRESSA [Suspect]
     Indication: NON-SMALL CELL LUNG CANCER
     Dosage: 250 MG QD PO
     Route: 048
     Dates: start: 20040323
  2. CENTRUM [Concomitant]
  3. PREDNISONE [Concomitant]
  4. COREG [Concomitant]
  5. LANOXIN [Concomitant]
  6. LASIX [Concomitant]
  7. POTASSIUM ACETATE [Concomitant]
  8. THEO-DUR [Concomitant]
  9. ADVAIR DISKUS 100/50 [Concomitant]
  10. ZOLOFT [Concomitant]
  11. FLOMAX [Concomitant]

REACTIONS (1)
  - DISEASE PROGRESSION [None]
